FAERS Safety Report 18247725 (Version 8)
Quarter: 2020Q4

REPORT INFORMATION
  Report Type: Spontaneous
  Country: US (occurrence: US)
  Receive Date: 20200909
  Receipt Date: 20201130
  Transmission Date: 20210113
  Serious: Yes (Hospitalization)
  Sender: FDA-Public Use
  Company Number: US-JNJFOC-A-US2020-204209

PATIENT
  Age: 27 Year
  Sex: Male
  Weight: 117.13 kg

DRUGS (9)
  1. ADEMPAS [Suspect]
     Active Substance: RIOCIGUAT
     Indication: PRODUCT USED FOR UNKNOWN INDICATION
     Dosage: 0.5 MG, TID
     Route: 065
     Dates: start: 202003
  2. VELETRI [Suspect]
     Active Substance: EPOPROSTENOL
     Route: 042
  3. VELETRI [Suspect]
     Active Substance: EPOPROSTENOL
     Dosage: STARTED 06/NOV/2020
     Route: 042
  4. VELETRI [Suspect]
     Active Substance: EPOPROSTENOL
     Route: 042
  5. OPSUMIT [Suspect]
     Active Substance: MACITENTAN
     Indication: PULMONARY ARTERIAL HYPERTENSION
     Route: 048
  6. VELETRI [Suspect]
     Active Substance: EPOPROSTENOL
     Route: 042
  7. OPSUMIT [Suspect]
     Active Substance: MACITENTAN
     Route: 048
  8. VELETRI [Suspect]
     Active Substance: EPOPROSTENOL
     Indication: PULMONARY ARTERIAL HYPERTENSION
     Route: 042
  9. VELETRI [Suspect]
     Active Substance: EPOPROSTENOL
     Route: 042

REACTIONS (28)
  - Faeces discoloured [Unknown]
  - Faeces hard [Unknown]
  - Cholelithiasis [Unknown]
  - Abdominal discomfort [Unknown]
  - Constipation [Unknown]
  - Haematochezia [Not Recovered/Not Resolved]
  - Catheter site pruritus [Unknown]
  - Diarrhoea [Unknown]
  - Rash [Recovered/Resolved]
  - Flushing [Unknown]
  - Back pain [Unknown]
  - Burning sensation [Unknown]
  - Product container issue [Unknown]
  - Gastrooesophageal reflux disease [Unknown]
  - Catheter site rash [Recovering/Resolving]
  - Therapy change [Unknown]
  - Fatigue [Unknown]
  - Chest discomfort [Unknown]
  - Pain in jaw [Unknown]
  - Pain [Unknown]
  - Cough [Unknown]
  - Abdominal pain upper [Unknown]
  - Headache [Not Recovered/Not Resolved]
  - Pain in extremity [Unknown]
  - Dizziness [Unknown]
  - Rash [Unknown]
  - Skin discolouration [Unknown]
  - Urticaria [Unknown]
